FAERS Safety Report 25226270 (Version 7)
Quarter: 2025Q4

REPORT INFORMATION
  Report Type: Report from Study
  Country: EU (occurrence: EU)
  Receive Date: 20250422
  Receipt Date: 20251218
  Transmission Date: 20260118
  Serious: No
  Sender: EXELIXIS
  Company Number: EU-IPSEN Group, Research and Development-2025-00598

PATIENT

DRUGS (6)
  1. CABOZANTINIB [Suspect]
     Active Substance: CABOZANTINIB
     Indication: Renal cell carcinoma
     Dosage: 20 MG, QD
     Dates: start: 20241113, end: 20250317
  2. CABOZANTINIB [Suspect]
     Active Substance: CABOZANTINIB
     Dosage: 20 MG, QD
     Dates: start: 20250425, end: 20250808
  3. CABOZANTINIB [Suspect]
     Active Substance: CABOZANTINIB
     Dosage: 20 MG, QD
     Dates: start: 20250922, end: 20251103
  4. VITAPANTOL [Concomitant]
     Indication: Wound
     Dosage: 1  APPLICATION AS NEEDED
     Route: 045
     Dates: start: 20250116
  5. LASIX [Concomitant]
     Active Substance: FUROSEMIDE
     Indication: Oedema peripheral
     Dosage: 20 MG, QD
     Route: 048
     Dates: start: 20250808
  6. FOLIC ACID [Concomitant]
     Active Substance: FOLIC ACID
     Indication: Prophylaxis
     Dosage: 1 MG, QD
     Route: 048
     Dates: start: 20250627

REACTIONS (13)
  - Pemphigoid [Unknown]
  - Pemphigoid [Unknown]
  - Intertrigo [Recovered/Resolved]
  - Nasal congestion [Unknown]
  - Dry eye [Unknown]
  - Alopecia [Unknown]
  - Dry mouth [Not Recovered/Not Resolved]
  - Pruritus [Unknown]
  - Fatigue [Not Recovered/Not Resolved]
  - Palmar-plantar erythrodysaesthesia syndrome [Not Recovered/Not Resolved]
  - Mucosal inflammation [Unknown]
  - Epistaxis [Unknown]
  - Diarrhoea [Not Recovered/Not Resolved]

NARRATIVE: CASE EVENT DATE: 20241101
